FAERS Safety Report 7721967-X (Version None)
Quarter: 2011Q3

REPORT INFORMATION
  Report Type: 
  Country: None (occurrence: None)
  Receive Date: 20110831
  Receipt Date: 20110824
  Transmission Date: 20111222
  Serious: Yes (Hospitalization, Other)
  Sender: FDA-Public Use
  Company Number: US-PFIZER INC-2011148053

PATIENT
  Sex: Female
  Weight: 46.71 kg

DRUGS (14)
  1. LOCOID [Concomitant]
     Dosage: 0.1 %, 2X/DAY
  2. NASONEX [Concomitant]
     Dosage: 2 SPRAYS EACH NOSTRIL EVERY DAY
     Route: 045
  3. COMPAZINE [Suspect]
     Indication: ABDOMINAL DISCOMFORT
     Dosage: 10 MG, DAILY
  4. ZANTAC [Concomitant]
     Dosage: 150 MG, 2X/DAY
     Route: 048
  5. COMPAZINE [Suspect]
     Indication: VOMITING
  6. ZOLOFT [Concomitant]
     Dosage: 50 MG, 2X/DAY
     Route: 048
  7. AVIANE-28 [Concomitant]
     Dosage: 0.1-20 MG-MCG, 1 TABLET DAILY
  8. ALPRAZOLAM [Suspect]
     Indication: OBSESSIVE-COMPULSIVE DISORDER
  9. ALPRAZOLAM [Suspect]
     Indication: ANXIETY
     Dosage: 1 MG THREE TIMES DAILY AS NEEDED
     Route: 048
  10. ALPRAZOLAM [Suspect]
     Indication: PANIC ATTACK
  11. FLUNISOLIDE [Concomitant]
     Dosage: 0.025% 2 SPRAY EACH NOSTRIL ONCE DAILY
     Route: 045
  12. TIGAN [Concomitant]
     Indication: ABDOMINAL DISCOMFORT
     Dosage: UNK
  13. SIMVASTATIN [Concomitant]
     Dosage: 5 MG, ONE TAB AT BEDTIME
     Route: 048
  14. CLARITIN [Concomitant]
     Dosage: 10 MG, 1X/DAY

REACTIONS (9)
  - OBSESSIVE-COMPULSIVE DISORDER [None]
  - ARTHROPATHY [None]
  - TREMOR [None]
  - ANAPHYLACTIC SHOCK [None]
  - NERVOUSNESS [None]
  - HYPOAESTHESIA [None]
  - JOINT RANGE OF MOTION DECREASED [None]
  - CONVULSION [None]
  - BENIGN BREAST NEOPLASM [None]
